FAERS Safety Report 24215095 (Version 2)
Quarter: 2024Q3

REPORT INFORMATION
  Report Type: Report from Study
  Country: US (occurrence: US)
  Receive Date: 20240816
  Receipt Date: 20240826
  Transmission Date: 20241017
  Serious: Yes (Other)
  Sender: ABBVIE
  Company Number: US-ABBVIE-5879948

PATIENT
  Age: 74 Year
  Sex: Female
  Weight: 88.451 kg

DRUGS (2)
  1. HUMIRA [Suspect]
     Active Substance: ADALIMUMAB
     Indication: Psoriasis
     Route: 058
     Dates: start: 20190816
  2. ELIQUIS [Concomitant]
     Active Substance: APIXABAN
     Indication: Atrial fibrillation

REACTIONS (5)
  - Retinal tear [Recovered/Resolved]
  - Agitation [Unknown]
  - Psoriasis [Recovered/Resolved]
  - Therapeutic product effect incomplete [Unknown]
  - Stress [Unknown]

NARRATIVE: CASE EVENT DATE: 20240701
